FAERS Safety Report 26213570 (Version 1)
Quarter: 2025Q4

REPORT INFORMATION
  Report Type: Spontaneous
  Country: US (occurrence: US)
  Receive Date: 20251230
  Receipt Date: 20251230
  Transmission Date: 20260118
  Serious: Yes (Life-Threatening, Hospitalization, Other)
  Sender: PFIZER
  Company Number: US-PFIZER INC-PV202500150103

PATIENT
  Age: 33 Year
  Sex: Male

DRUGS (4)
  1. NOREPINEPHRINE BITARTRATE [Suspect]
     Active Substance: NOREPINEPHRINE BITARTRATE
     Indication: Hypotension
     Dosage: UNK (UP TO 0.65 MCG/KG/MIN)
  2. HYDROCORTISONE ACETATE [Suspect]
     Active Substance: HYDROCORTISONE ACETATE
     Indication: Hypotension
     Dosage: UNK
  3. VASOPRESSIN [Suspect]
     Active Substance: VASOPRESSIN
     Indication: Hypotension
     Dosage: UNK (0.06 UNITS/MIN)
  4. ANGIOTENSIN II [Suspect]
     Active Substance: ANGIOTENSIN II
     Indication: Hypotension
     Dosage: 40 NG/KG/MIN

REACTIONS (1)
  - Drug ineffective [Unknown]
